FAERS Safety Report 18322594 (Version 1)
Quarter: 2020Q3

REPORT INFORMATION
  Report Type: Spontaneous
  Country: US (occurrence: US)
  Receive Date: 20200928
  Receipt Date: 20200928
  Transmission Date: 20201103
  Serious: No
  Sender: FDA-Public Use
  Company Number: None

PATIENT
  Age: 75 Year
  Sex: Male
  Weight: 85.05 kg

DRUGS (8)
  1. IBRANCE [Suspect]
     Active Substance: PALBOCICLIB
     Indication: BREAST CANCER MALE
     Route: 048
     Dates: start: 20200910
  2. DEXAMETHASONE 4MG [Concomitant]
     Active Substance: DEXAMETHASONE
  3. DILTIAZEM 120MG [Concomitant]
  4. CO?Q10 OMEGA?3 FISH OIL [Concomitant]
  5. LOSARTAN 50MG [Concomitant]
     Active Substance: LOSARTAN
  6. MAGNESIUM LACTATE [Concomitant]
     Active Substance: MAGNESIUM LACTATE
  7. ONDANSETRON 8MG [Concomitant]
     Active Substance: ONDANSETRON
  8. PROCHLORPERAZINE 10MG [Concomitant]

REACTIONS (4)
  - White blood cell count decreased [None]
  - Fatigue [None]
  - Therapy interrupted [None]
  - Nausea [None]

NARRATIVE: CASE EVENT DATE: 20200928
